FAERS Safety Report 9382243 (Version 1)
Quarter: 2013Q3

REPORT INFORMATION
  Report Type: Spontaneous
  Country: US (occurrence: None)
  Receive Date: 20130702
  Receipt Date: 20130702
  Transmission Date: 20140515
  Serious: Yes (Other)
  Sender: FDA-Public Use
  Company Number: None

PATIENT
  Sex: 0

DRUGS (6)
  1. NORVASC [Suspect]
     Indication: CEREBROVASCULAR ACCIDENT
     Route: 048
     Dates: end: 20130601
  2. METROPROLOL [Concomitant]
  3. HYDRALAZINE [Concomitant]
  4. HYDROCHLORTHIAZIDE [Concomitant]
  5. ASPIRIN [Concomitant]
  6. ATROVASTATIN [Concomitant]

REACTIONS (2)
  - Arthralgia [None]
  - Myalgia [None]
